FAERS Safety Report 6242073-X (Version None)
Quarter: 2009Q2

REPORT INFORMATION
  Report Type: 
  Country: None (occurrence: None)
  Receive Date: 20090622
  Receipt Date: 20090605
  Transmission Date: 20091009
  Serious: Yes (Death)
  Sender: FDA-Public Use
  Company Number: MK-051219-0001447

PATIENT
  Age: 2 Day
  Sex: Male
  Weight: 1 kg

DRUGS (7)
  1. INDOCIN [Suspect]
     Indication: PATENT DUCTUS ARTERIOSUS
     Dosage: 0.15 MG/KG;QD;IV
     Route: 042
     Dates: start: 19950511, end: 19950511
  2. FIBROGAMMIN [Concomitant]
  3. INSULIN HUMAN [Concomitant]
  4. DOPAMINE HYDROCHLORIDE [Concomitant]
  5. DOBUTAMINE HYDROCHLORIDE [Concomitant]
  6. SURFACTEN [Concomitant]
  7. DEXTROSE 5% [Concomitant]

REACTIONS (14)
  - ACIDOSIS [None]
  - ANAEMIA NEONATAL [None]
  - BLOOD PRESSURE DECREASED [None]
  - BRADYCARDIA FOETAL [None]
  - CAESAREAN SECTION [None]
  - CEREBRAL HAEMORRHAGE [None]
  - CEREBRAL VENTRICLE DILATATION [None]
  - HYPOKALAEMIA [None]
  - INTRAVENTRICULAR HAEMORRHAGE [None]
  - NEONATAL RESPIRATORY DISTRESS SYNDROME [None]
  - NO THERAPEUTIC RESPONSE [None]
  - PLATELET COUNT DECREASED [None]
  - PREMATURE BABY [None]
  - PULMONARY HAEMORRHAGE [None]
